FAERS Safety Report 15188350 (Version 1)
Quarter: 2018Q3

REPORT INFORMATION
  Report Type: Spontaneous
  Country: ES (occurrence: ES)
  Receive Date: 20180724
  Receipt Date: 20180724
  Transmission Date: 20181010
  Serious: Yes (Other)
  Sender: FDA-Public Use
  Company Number: ES-TEVA-2018-ES-874628

PATIENT
  Age: 44 Year
  Sex: Male

DRUGS (3)
  1. COTRIMOXAZOL, 160 MG/800 MG [Interacting]
     Active Substance: SULFAMETHOXAZOLE\TRIMETHOPRIM
     Indication: ACUTE INTERSTITIAL PNEUMONITIS
     Route: 042
     Dates: start: 20171228, end: 20180106
  2. METILPREDNISOLONA (888A) [Concomitant]
     Active Substance: METHYLPREDNISOLONE
     Indication: DERMATOMYOSITIS
     Route: 042
     Dates: start: 20171227, end: 20180114
  3. TACROLIMUS. [Suspect]
     Active Substance: TACROLIMUS
     Indication: DERMATOMYOSITIS
     Route: 048
     Dates: start: 201711

REACTIONS (3)
  - Metabolic acidosis [Recovered/Resolved]
  - Drug interaction [Unknown]
  - Hyperkalaemia [Recovered/Resolved]

NARRATIVE: CASE EVENT DATE: 20180101
